FAERS Safety Report 5205727-X (Version None)
Quarter: 2007Q1

REPORT INFORMATION
  Report Type: 
  Country: None (occurrence: None)
  Receive Date: 20070105
  Receipt Date: 20070105
  Transmission Date: 20070707
  Serious: Yes (Life-Threatening, Hospitalization)
  Sender: FDA-Public Use
  Company Number: None

PATIENT
  Age: 60 Year
  Sex: Male
  Weight: 93.8946 kg

DRUGS (5)
  1. SUNITINIB 50MG [Suspect]
     Indication: METASTATIC RENAL CELL CARCINOMA
     Dosage: 1 CAPSULE DAILY ORAL
     Route: 048
     Dates: start: 20060906, end: 20061004
  2. ATENOLOL [Concomitant]
  3. LISINOPRIL [Concomitant]
  4. GABAPENTIN [Concomitant]
  5. CLOTRIMAZOLE/BETAMETH CREAM [Concomitant]

REACTIONS (6)
  - ABDOMINAL ABSCESS [None]
  - CHILLS [None]
  - DECREASED APPETITE [None]
  - DIVERTICULAR PERFORATION [None]
  - DIVERTICULITIS [None]
  - MALAISE [None]
